FAERS Safety Report 5701863-X (Version None)
Quarter: 2008Q2

REPORT INFORMATION
  Report Type: 
  Country: None (occurrence: None)
  Receive Date: 20080411
  Receipt Date: 20080402
  Transmission Date: 20081010
  Serious: Yes (Other)
  Sender: FDA-Public Use
  Company Number: CH-BRISTOL-MYERS SQUIBB COMPANY-14136006

PATIENT
  Age: 48 Year
  Sex: Female

DRUGS (5)
  1. ABILIFY [Interacting]
     Indication: SCHIZOPHRENIA
     Route: 048
  2. ABILIFY [Interacting]
     Indication: AFFECTIVE DISORDER
     Route: 048
  3. REYATAZ [Suspect]
     Indication: HIV INFECTION
  4. EFFEXOR [Concomitant]
  5. CONCERTA [Concomitant]

REACTIONS (4)
  - BLOOD CREATINE PHOSPHOKINASE INCREASED [None]
  - DRUG INTERACTION [None]
  - MUSCULAR WEAKNESS [None]
  - MYOGLOBIN BLOOD INCREASED [None]
